FAERS Safety Report 5119950-6 (Version None)
Quarter: 2006Q3

REPORT INFORMATION
  Report Type: 
  Country: None (occurrence: None)
  Receive Date: 20060928
  Receipt Date: 20060922
  Transmission Date: 20061208
  Serious: Yes (Life-Threatening, Hospitalization)
  Sender: FDA-Public Use
  Company Number: TCI2006A02286

PATIENT
  Age: 77 Year
  Sex: Male

DRUGS (10)
  1. LEUPROLIDE ACETATE [Suspect]
     Indication: PROSTATE CANCER
     Dosage: 1 IN 28 D SUBCUTANEOUS
     Route: 058
     Dates: start: 20060405, end: 20060501
  2. CHLORMADINONE ACETATE TAB [Suspect]
     Indication: PROSTATE CANCER
     Dosage: 100 MG (50 MG, 2 IN 1 D) PER ORAL
     Route: 048
     Dates: start: 20060403, end: 20060523
  3. ALLOPURINOL TAB [Suspect]
     Indication: GOUT
     Dosage: PER ORAL
     Route: 048
     Dates: start: 20060301, end: 20060523
  4. URIEF (SILODOSIN) (CAPSULES) [Concomitant]
  5. LASIX [Concomitant]
  6. ASPIRIN [Concomitant]
  7. NORVASC [Concomitant]
  8. NITOROL R [Concomitant]
  9. MAGNESIUM OXIDE (PREPARATION FOR ORAL USE (NOS)) [Concomitant]
  10. NICORANDIS (NICORANDIL) [Concomitant]

REACTIONS (26)
  - ADENOCARCINOMA [None]
  - AORTIC DILATATION [None]
  - BILE DUCT STONE [None]
  - BLOOD LACTATE DEHYDROGENASE INCREASED [None]
  - CARCINOID TUMOUR OF THE GASTROINTESTINAL TRACT [None]
  - CHOLANGITIS [None]
  - CHOLECYSTITIS [None]
  - CHOLELITHIASIS [None]
  - CHOLESTASIS [None]
  - COMPUTERISED TOMOGRAM ABNORMAL [None]
  - GASTROINTESTINAL DISORDER [None]
  - GRANULOMA [None]
  - HYPERPLASIA [None]
  - INFLAMMATION [None]
  - INTERVERTEBRAL DISC CALCIFICATION [None]
  - LUNG DISORDER [None]
  - LUNG NEOPLASM [None]
  - LYMPHADENOPATHY [None]
  - OESOPHAGEAL CANDIDIASIS [None]
  - PANCREATIC DISORDER [None]
  - POLYP [None]
  - RENAL ATROPHY [None]
  - RENAL CYST [None]
  - RENAL FAILURE CHRONIC [None]
  - THROMBOSIS [None]
  - TUMOUR MARKER INCREASED [None]
